FAERS Safety Report 13229087 (Version 1)
Quarter: 2017Q1

REPORT INFORMATION
  Report Type: Spontaneous
  Country: US (occurrence: US)
  Receive Date: 20170214
  Receipt Date: 20170214
  Transmission Date: 20170428
  Serious: No
  Sender: FDA-Public Use
  Company Number: US-009507513-1702USA002509

PATIENT
  Sex: Female

DRUGS (1)
  1. REMERON [Suspect]
     Active Substance: MIRTAZAPINE
     Dosage: UNK
     Route: 048

REACTIONS (9)
  - Asthenia [Unknown]
  - Dizziness [Unknown]
  - Visual impairment [Unknown]
  - Nightmare [Unknown]
  - Night sweats [Unknown]
  - Thirst [Unknown]
  - Dyspnoea [Unknown]
  - Dry mouth [Unknown]
  - Decreased appetite [Unknown]
